FAERS Safety Report 6647145-3 (Version None)
Quarter: 2010Q1

REPORT INFORMATION
  Report Type: 
  Country: None (occurrence: None)
  Receive Date: 20100323
  Receipt Date: 20100312
  Transmission Date: 20100710
  Serious: Yes (Hospitalization)
  Sender: FDA-Public Use
  Company Number: PHHO2010DE03903

PATIENT
  Sex: Female

DRUGS (4)
  1. SIMULECT [Suspect]
     Indication: RENAL TRANSPLANT
     Route: 048
  2. CYCLOSPORINE [Suspect]
     Indication: RENAL TRANSPLANT
     Route: 048
  3. MYFORTIC [Concomitant]
     Indication: RENAL TRANSPLANT
     Route: 048
  4. AZATHIOPRINE [Concomitant]

REACTIONS (3)
  - ISCHAEMIA [None]
  - MUSCLE SPASMS [None]
  - THERAPEUTIC AGENT TOXICITY [None]
